FAERS Safety Report 6059253-9 (Version None)
Quarter: 2009Q1

REPORT INFORMATION
  Report Type: 
  Country: None (occurrence: None)
  Receive Date: 20090130
  Receipt Date: 20090128
  Transmission Date: 20090719
  Serious: Yes (Hospitalization)
  Sender: FDA-Public Use
  Company Number: DE-MERCK-0901DEU00334

PATIENT
  Sex: Male

DRUGS (1)
  1. PROPECIA [Suspect]
     Route: 048

REACTIONS (1)
  - VENOUS THROMBOSIS LIMB [None]
